FAERS Safety Report 4802938-X (Version None)
Quarter: 2005Q4

REPORT INFORMATION
  Report Type: 
  Country: None (occurrence: None)
  Receive Date: 20051013
  Receipt Date: 20050928
  Transmission Date: 20060501
  Serious: Yes (Hospitalization)
  Sender: FDA-Public Use
  Company Number: US_0508121134

PATIENT
  Age: 76 Year
  Sex: Female
  Weight: 61 kg

DRUGS (6)
  1. TERIPARATIDE [Suspect]
     Indication: OSTEOPOROSIS
     Dosage: 20 UG/D
     Dates: start: 20050216
  2. PREMARIN [Concomitant]
  3. ACTONEL [Concomitant]
  4. CALCIUM W/VITAMIN D NOS [Concomitant]
  5. MULTI-VITAMIN [Concomitant]
  6. PERCOCET [Concomitant]

REACTIONS (22)
  - ABDOMINAL DISCOMFORT [None]
  - ABDOMINAL PAIN UPPER [None]
  - ATELECTASIS [None]
  - CARDIOMYOPATHY [None]
  - CHOLECYSTITIS [None]
  - CHOLELITHIASIS [None]
  - DISCOMFORT [None]
  - ECCHYMOSIS [None]
  - EFFUSION [None]
  - EJECTION FRACTION DECREASED [None]
  - GAMMA-GLUTAMYLTRANSFERASE INCREASED [None]
  - HAEMOGLOBIN DECREASED [None]
  - HYPOXIA [None]
  - NAUSEA [None]
  - NECK PAIN [None]
  - OEDEMA PERIPHERAL [None]
  - ORAL INTAKE REDUCED [None]
  - POST PROCEDURAL COMPLICATION [None]
  - PROCEDURAL PAIN [None]
  - PULMONARY EMBOLISM [None]
  - SUPRAVENTRICULAR TACHYCARDIA [None]
  - TROPONIN INCREASED [None]
